FAERS Safety Report 5840461-4 (Version None)
Quarter: 2008Q3

REPORT INFORMATION
  Report Type: 
  Country: None (occurrence: None)
  Receive Date: 20080807
  Receipt Date: 20080725
  Transmission Date: 20090109
  Serious: Yes (Hospitalization)
  Sender: FDA-Public Use
  Company Number: THYR-1000074

PATIENT
  Age: 32 Year
  Sex: Female

DRUGS (2)
  1. THYROGEN [Suspect]
     Indication: DIAGNOSTIC PROCEDURE
     Dosage: 0.9 MG, QD, INTRAMUSCULAR
     Route: 030
     Dates: start: 20080721, end: 20080722
  2. CONTRACEPTIVES NOS (BIRTH CONTROL PILL) [Concomitant]

REACTIONS (4)
  - CEREBELLAR INFARCTION [None]
  - CEREBRAL INFARCTION [None]
  - HYPOAESTHESIA [None]
  - MUSCULAR WEAKNESS [None]
